FAERS Safety Report 25922493 (Version 1)
Quarter: 2025Q4

REPORT INFORMATION
  Report Type: Spontaneous
  Country: US (occurrence: US)
  Receive Date: 20251015
  Receipt Date: 20251015
  Transmission Date: 20260118
  Serious: Yes (Other)
  Sender: ADVANZ PHARMA
  Company Number: US-ADVANZ PHARMA-202510009051

PATIENT

DRUGS (3)
  1. HYDROXYCHLOROQUINE [Suspect]
     Active Substance: HYDROXYCHLOROQUINE
     Indication: Rheumatoid arthritis
     Dosage: 200 MG, BID
     Route: 065
  2. ADALIMUMAB [Concomitant]
     Active Substance: ADALIMUMAB
     Indication: Rheumatoid arthritis
     Dosage: UNK
     Route: 065
     Dates: end: 2016
  3. ABATACEPT [Concomitant]
     Active Substance: ABATACEPT
     Indication: Rheumatoid arthritis
     Dosage: UNK
     Route: 065
     Dates: start: 2016

REACTIONS (3)
  - Microvascular coronary artery disease [Recovering/Resolving]
  - Cardiomyopathy [Recovering/Resolving]
  - Toxicity to various agents [Recovering/Resolving]
